FAERS Safety Report 8775924 (Version 1)
Quarter: 2012Q4

REPORT INFORMATION
  Report Type: 
  Country: US (occurrence: US)
  Receive Date: 20120910
  Receipt Date: 20120910
  Transmission Date: 20130627
  Serious: No
  Sender: FDA-Public Use
  Company Number: US-B.I. PHARMACEUTICALS,INC./RIDGEFIELD-2012-BP-22118BP

PATIENT
  Age: 72 None
  Sex: Male
  Weight: 71 kg

DRUGS (7)
  1. FLOMAX CAPSULES [Suspect]
     Indication: URINARY RETENTION
     Dosage: 0.4 mg
     Route: 048
     Dates: start: 201206, end: 20120711
  2. FLOMAX CAPSULES [Suspect]
     Dosage: 0.8 mg
     Route: 048
     Dates: start: 20120711, end: 20120902
  3. SYNTHROID [Concomitant]
     Indication: HYPOTHYROIDISM
     Dosage: 137 mcg
     Route: 048
     Dates: start: 2002
  4. LIPITOR [Concomitant]
     Indication: BLOOD CHOLESTEROL INCREASED
     Dosage: 5 mg
     Route: 048
     Dates: start: 2002
  5. ZETIA [Concomitant]
     Indication: BLOOD CHOLESTEROL INCREASED
     Dosage: 5 mg
     Route: 048
     Dates: start: 2002
  6. ACEBUTOLOL [Concomitant]
     Indication: HYPERTENSION
     Dosage: 200 mg
     Route: 048
     Dates: start: 2005
  7. CENTRUM [Concomitant]
     Indication: VITAMIN B COMPLEX DEFICIENCY
     Route: 048
     Dates: start: 2005

REACTIONS (6)
  - Nasal congestion [Recovered/Resolved]
  - Urticaria [Recovered/Resolved]
  - Pruritus [Not Recovered/Not Resolved]
  - Hypotension [Recovered/Resolved]
  - Fall [Recovered/Resolved]
  - Dysphonia [Recovered/Resolved]
